FAERS Safety Report 12582782 (Version 2)
Quarter: 2016Q3

REPORT INFORMATION
  Report Type: Spontaneous
  Country: CH (occurrence: CH)
  Receive Date: 20160722
  Receipt Date: 20160804
  Transmission Date: 20161109
  Serious: Yes (Disabling)
  Sender: FDA-Public Use
  Company Number: CH-JNJFOC-20160701896

PATIENT
  Age: 24 Year
  Sex: Female
  Weight: 71 kg

DRUGS (2)
  1. SIMPONI [Suspect]
     Active Substance: GOLIMUMAB
     Indication: SPONDYLITIS
     Route: 058
     Dates: start: 201512
  2. CELECOXIB. [Concomitant]
     Active Substance: CELECOXIB
     Indication: SPONDYLITIS
     Route: 048
     Dates: start: 201512

REACTIONS (3)
  - Off label use [Unknown]
  - Tooth fracture [Unknown]
  - Product use issue [Unknown]

NARRATIVE: CASE EVENT DATE: 201512
